FAERS Safety Report 24312802 (Version 1)
Quarter: 2024Q3

REPORT INFORMATION
  Report Type: Spontaneous
  Country: US (occurrence: US)
  Receive Date: 20240912
  Receipt Date: 20240912
  Transmission Date: 20241017
  Serious: Yes (Other)
  Sender: VIIV
  Company Number: US-VIIV HEALTHCARE LIMITED-US2024110686

PATIENT
  Age: 46 Year
  Sex: Male

DRUGS (4)
  1. CABOTEGRAVIR [Suspect]
     Active Substance: CABOTEGRAVIR
     Indication: Prophylaxis
     Dosage: 600 MG
     Route: 030
     Dates: start: 20240831, end: 202409
  2. CABOTEGRAVIR [Suspect]
     Active Substance: CABOTEGRAVIR
  3. CABOTEGRAVIR [Suspect]
     Active Substance: CABOTEGRAVIR
  4. DOXYCYCLINE [Concomitant]
     Active Substance: DOXYCYCLINE\DOXYCYCLINE HYCLATE
     Indication: Prophylaxis
     Dosage: UNK
     Dates: start: 20240726

REACTIONS (4)
  - Injection site reaction [Not Recovered/Not Resolved]
  - Neuralgia [Unknown]
  - Nerve injury [Unknown]
  - Gait disturbance [Unknown]

NARRATIVE: CASE EVENT DATE: 20240831
